FAERS Safety Report 22227009 (Version 2)
Quarter: 2023Q2

REPORT INFORMATION
  Report Type: Spontaneous
  Country: JP (occurrence: JP)
  Receive Date: 20230419
  Receipt Date: 20230420
  Transmission Date: 20230721
  Serious: Yes (Death, Other)
  Sender: FDA-Public Use
  Company Number: JP-GLAXOSMITHKLINE-JP2023JPN052608

PATIENT

DRUGS (3)
  1. HEPSERA [Suspect]
     Active Substance: ADEFOVIR DIPIVOXIL
     Indication: Product used for unknown indication
     Dosage: UNK
     Route: 065
     Dates: start: 2011
  2. ZEFIX [Suspect]
     Active Substance: LAMIVUDINE
     Indication: Product used for unknown indication
     Dosage: UNK
     Route: 048
     Dates: start: 1997
  3. VEMLIDY [Concomitant]
     Active Substance: TENOFOVIR ALAFENAMIDE FUMARATE

REACTIONS (4)
  - Death [Fatal]
  - Liver disorder [Unknown]
  - Abdominal distension [Unknown]
  - Chromaturia [Unknown]
